FAERS Safety Report 14710306 (Version 1)
Quarter: 2018Q2

REPORT INFORMATION
  Report Type: Spontaneous
  Country: US (occurrence: US)
  Receive Date: 20180403
  Receipt Date: 20180403
  Transmission Date: 20180711
  Serious: No
  Sender: FDA-Public Use
  Company Number: US-ROCHE-1931837

PATIENT
  Sex: Female

DRUGS (5)
  1. ERIVEDGE [Suspect]
     Active Substance: VISMODEGIB
     Indication: BASAL CELL CARCINOMA
     Route: 048
     Dates: start: 20170330
  2. LISINOPRIL. [Concomitant]
     Active Substance: LISINOPRIL
  3. ERY-TAB [Concomitant]
     Active Substance: ERYTHROMYCIN
  4. KETEK (UNITED STATES) [Concomitant]
  5. LINCOMYCIN. [Concomitant]
     Active Substance: LINCOMYCIN

REACTIONS (3)
  - Decreased appetite [Unknown]
  - Constipation [Unknown]
  - Dysgeusia [Unknown]
